FAERS Safety Report 18533964 (Version 1)
Quarter: 2020Q4

REPORT INFORMATION
  Report Type: Spontaneous
  Country: US (occurrence: US)
  Receive Date: 20201122
  Receipt Date: 20201122
  Transmission Date: 20210114
  Serious: Yes (Other)
  Sender: FDA-Public Use
  Company Number: None

PATIENT
  Age: 75 Year
  Sex: Female
  Weight: 50.18 kg

DRUGS (5)
  1. BISOPROLOL FUMARATE. [Suspect]
     Active Substance: BISOPROLOL FUMARATE
     Indication: HYPERTENSION
     Dosage: QUANTITY:1 TABLET(S);?
     Route: 048
  2. LISINOPRIL. [Concomitant]
     Active Substance: LISINOPRIL
  3. IBUPROFEN. [Concomitant]
     Active Substance: IBUPROFEN
  4. MVI [Concomitant]
     Active Substance: VITAMINS
  5. ASA [Concomitant]
     Active Substance: ASPIRIN

REACTIONS (8)
  - Abdominal pain upper [None]
  - Hunger [None]
  - Gastrooesophageal reflux disease [None]
  - Nausea [None]
  - Oral discomfort [None]
  - Drug ineffective [None]
  - Weight decreased [None]
  - Dysgeusia [None]

NARRATIVE: CASE EVENT DATE: 20200315
